FAERS Safety Report 15476146 (Version 10)
Quarter: 2020Q2

REPORT INFORMATION
  Report Type: Report from Study
  Country: CA (occurrence: CA)
  Receive Date: 20181009
  Receipt Date: 20200512
  Transmission Date: 20200713
  Serious: Yes (Hospitalization, Other)
  Sender: FDA-Public Use
  Company Number: PHHY2017CA028638

PATIENT
  Age: 68 Year
  Sex: Male

DRUGS (7)
  1. SANDOSTATIN [Suspect]
     Active Substance: OCTREOTIDE ACETATE
     Indication: CARCINOID TUMOUR
     Dosage: UNK UNK, TID
     Route: 058
     Dates: start: 20161213, end: 20161222
  2. CEPHALEXIN. [Concomitant]
     Active Substance: CEPHALEXIN
     Indication: PRODUCT USED FOR UNKNOWN INDICATION
     Dosage: 500 MG, QID
     Route: 065
  3. SANDOSTATIN LAR DEPOT [Suspect]
     Active Substance: OCTREOTIDE ACETATE
     Indication: CARCINOID TUMOUR
     Dosage: 20 MG, QMO (ONCE A MONTH)
     Route: 030
     Dates: start: 20161207, end: 20170106
  4. SANDOSTATIN LAR DEPOT [Suspect]
     Active Substance: OCTREOTIDE ACETATE
     Dosage: 30 MG, QMO (EVERY 4 WEEKS)
     Route: 030
     Dates: start: 20161207
  5. SANDOSTATIN LAR DEPOT [Suspect]
     Active Substance: OCTREOTIDE ACETATE
     Dosage: 30 MG, QMO (EVERY 4 WEEKS)
     Route: 030
     Dates: start: 20180831
  6. SANDOSTATIN LAR DEPOT [Suspect]
     Active Substance: OCTREOTIDE ACETATE
     Dosage: 30 MG, QMO (EVERY 4 WEEKS)
     Route: 030
     Dates: start: 201701
  7. PANCREATIC ENZYMES [Concomitant]
     Active Substance: UNSPECIFIED INGREDIENT
     Indication: PRODUCT USED FOR UNKNOWN INDICATION
     Dosage: 3 DF (2 CAPS WITH MEALS, 1 CAP WITH SNACKS)
     Route: 065

REACTIONS (31)
  - Prostate cancer [Unknown]
  - Second primary malignancy [Unknown]
  - Pain in extremity [Unknown]
  - Feeling cold [Unknown]
  - Diarrhoea [Not Recovered/Not Resolved]
  - Blood pressure increased [Unknown]
  - Diarrhoea haemorrhagic [Unknown]
  - Hot flush [Unknown]
  - Headache [Not Recovered/Not Resolved]
  - Anal haemorrhage [Unknown]
  - Abdominal pain [Recovered/Resolved]
  - Cholelithiasis [Unknown]
  - Pain [Unknown]
  - Prostatomegaly [Unknown]
  - Fatigue [Unknown]
  - Abdominal discomfort [Unknown]
  - Urinary tract infection [Unknown]
  - Peripheral swelling [Unknown]
  - Cystitis [Unknown]
  - Cataract [Recovered/Resolved]
  - Dysuria [Unknown]
  - Malaise [Unknown]
  - Injection site pain [Unknown]
  - Abdominal pain upper [Not Recovered/Not Resolved]
  - Osteoarthritis [Unknown]
  - Arthralgia [Unknown]
  - Upper limb fracture [Unknown]
  - Visual impairment [Unknown]
  - Fall [Unknown]
  - Constipation [Unknown]
  - Eye pain [Unknown]

NARRATIVE: CASE EVENT DATE: 20170217
